FAERS Safety Report 20079947 (Version 1)
Quarter: 2021Q4

REPORT INFORMATION
  Report Type: Report from Study
  Country: IT (occurrence: IT)
  Receive Date: 20211117
  Receipt Date: 20211117
  Transmission Date: 20220303
  Serious: Yes (Other)
  Sender: FDA-Public Use
  Company Number: None

PATIENT
  Age: 74 Year
  Sex: Female
  Weight: 47 kg

DRUGS (2)
  1. CARBOPLATIN [Suspect]
     Active Substance: CARBOPLATIN
     Indication: Lung carcinoma cell type unspecified stage IV
     Dosage: 280 MG
     Dates: start: 20210921
  2. KEYTRUDA [Suspect]
     Active Substance: PEMBROLIZUMAB
     Indication: Lung carcinoma cell type unspecified stage IV
     Dosage: 200 MG
     Dates: start: 20210921

REACTIONS (4)
  - Anaemia [Unknown]
  - Asthenia [Unknown]
  - Pyrexia [Unknown]
  - White blood cell disorder [Unknown]

NARRATIVE: CASE EVENT DATE: 20211022
